FAERS Safety Report 21363130 (Version 1)
Quarter: 2022Q3

REPORT INFORMATION
  Report Type: Spontaneous
  Country: US (occurrence: US)
  Receive Date: 20220922
  Receipt Date: 20220922
  Transmission Date: 20221027
  Serious: Yes (Other)
  Sender: FDA-Public Use
  Company Number: US-ASTPRD-AER-2022-014082

PATIENT
  Age: 75 Year
  Sex: Female

DRUGS (5)
  1. LEXISCAN [Suspect]
     Active Substance: REGADENOSON
     Indication: Cardiac stress test
     Dosage: UNK UNK, UNKNOWN FREQ. (ONCE FOR STRESS TEST)
     Route: 042
     Dates: start: 20220624, end: 20220624
  2. LEXISCAN [Suspect]
     Active Substance: REGADENOSON
     Indication: Cardiac stress test
     Dosage: UNK UNK, UNKNOWN FREQ. (ONCE FOR STRESS TEST)
     Route: 042
     Dates: start: 20220624, end: 20220624
  3. LEXISCAN [Suspect]
     Active Substance: REGADENOSON
     Indication: Cardiac stress test
     Dosage: UNK UNK, UNKNOWN FREQ. (ONCE FOR STRESS TEST)
     Route: 042
     Dates: start: 20220624, end: 20220624
  4. LEXISCAN [Suspect]
     Active Substance: REGADENOSON
     Indication: Cardiac stress test
     Dosage: UNK UNK, UNKNOWN FREQ. (ONCE FOR STRESS TEST)
     Route: 042
     Dates: start: 20220624, end: 20220624
  5. MAXZIDE [Concomitant]
     Active Substance: HYDROCHLOROTHIAZIDE\TRIAMTERENE
     Indication: Product used for unknown indication
     Dosage: UNK UNK, UNKNOWN FREQ. (37.5)
     Route: 065

REACTIONS (5)
  - Cardiac failure [Unknown]
  - Loss of consciousness [Unknown]
  - Drug hypersensitivity [Recovered/Resolved]
  - General physical health deterioration [Unknown]
  - Ejection fraction decreased [Unknown]

NARRATIVE: CASE EVENT DATE: 20220809
